FAERS Safety Report 4461635-3 (Version None)
Quarter: 2004Q3

REPORT INFORMATION
  Report Type: 
  Country: None (occurrence: None)
  Receive Date: 20040923
  Receipt Date: 20040908
  Transmission Date: 20050211
  Serious: No
  Sender: FDA-Public Use
  Company Number: A01200404285

PATIENT
  Age: 61 Year
  Sex: Male

DRUGS (4)
  1. PLAVIX [Suspect]
     Indication: ARTERITIS
     Dosage: 75 MG, OD, ORAL
     Route: 048
  2. ASPIRIN [Suspect]
     Indication: ARTERITIS
     Dosage: 75 MG QD ORAL
     Route: 048
  3. COTAREG          (GALENIC/HYDROCHLOROTHIAZIDE/VALSARTAN) [Concomitant]
  4. TEMERIT   (NEBIVOLOL) [Concomitant]

REACTIONS (2)
  - DIRECTIONAL DOPPLER FLOW TESTS ABNORMAL [None]
  - PHLEBITIS DEEP [None]
